FAERS Safety Report 6522095-1 (Version None)
Quarter: 2009Q4

REPORT INFORMATION
  Report Type: 
  Country: None (occurrence: None)
  Receive Date: 20091229
  Receipt Date: 20091229
  Transmission Date: 20100525
  Serious: No
  Sender: FDA-Public Use
  Company Number: None

PATIENT
  Age: 59 Year
  Sex: Female
  Weight: 81 kg

DRUGS (10)
  1. ARGATROBAN [Suspect]
     Indication: PROPHYLAXIS
     Dosage: VAR. CI
  2. CLOPIDOGREL [Concomitant]
  3. ESCITALOPRAM [Concomitant]
  4. ASPIRIN [Concomitant]
  5. THIAMIZE [Concomitant]
  6. FOLIC ACID [Concomitant]
  7. AMIODARONE HCL [Concomitant]
  8. SILDENAFIL [Concomitant]
  9. M.V.I. [Concomitant]
  10. FERROUS SULFATE TAB [Concomitant]

REACTIONS (1)
  - VAGINAL HAEMORRHAGE [None]
